FAERS Safety Report 5598054-2 (Version None)
Quarter: 2008Q1

REPORT INFORMATION
  Report Type: 
  Country: None (occurrence: None)
  Receive Date: 20080116
  Receipt Date: 20080103
  Transmission Date: 20080703
  Serious: Yes (Other)
  Sender: FDA-Public Use
  Company Number: 02100-EUR-08-0005

PATIENT
  Age: 71 Year
  Sex: Female

DRUGS (1)
  1. CILOSTAZOL [Suspect]
     Dosage: ORAL
     Route: 048
     Dates: start: 20070601, end: 20071101

REACTIONS (1)
  - PULMONARY FIBROSIS [None]
